FAERS Safety Report 5599692-3 (Version None)
Quarter: 2008Q1

REPORT INFORMATION
  Report Type: 
  Country: None (occurrence: None)
  Receive Date: 20080123
  Receipt Date: 20080114
  Transmission Date: 20080703
  Serious: Yes (Hospitalization)
  Sender: FDA-Public Use
  Company Number: FR-BRISTOL-MYERS SQUIBB COMPANY-14047096

PATIENT
  Age: 23 Year
  Sex: Female

DRUGS (13)
  1. ENDOXAN [Suspect]
     Indication: NEUROPSYCHIATRIC LUPUS
     Dosage: THERAPY DURATION: 2 INF
     Route: 042
     Dates: start: 20071128, end: 20071218
  2. MESNA [Concomitant]
     Dates: start: 20071128
  3. BACTRIM [Concomitant]
     Route: 048
     Dates: start: 20071128, end: 20071210
  4. DI-ANTALVIC [Concomitant]
     Route: 048
     Dates: start: 20071205, end: 20071207
  5. ZOLOFT [Concomitant]
     Dates: start: 20071101, end: 20071204
  6. XANAX [Concomitant]
     Dates: start: 20071101, end: 20071208
  7. IVERMECTIN [Concomitant]
     Route: 048
     Dates: start: 20071123
  8. FLUVERMAL [Concomitant]
     Route: 048
     Dates: start: 20071124, end: 20071126
  9. SOLU-MEDROL [Concomitant]
     Dates: start: 20071128
  10. CORTANCYL [Concomitant]
  11. SPECIAFOLDINE [Concomitant]
  12. DECAPEPTYL [Concomitant]
     Route: 042
  13. ZOMETA [Concomitant]
     Route: 042

REACTIONS (5)
  - ATRIAL FLUTTER [None]
  - CHOLESTASIS [None]
  - HEPATOCELLULAR INJURY [None]
  - HEPATOJUGULAR REFLUX [None]
  - LIVER DISORDER [None]
